FAERS Safety Report 5091579-8 (Version None)
Quarter: 2006Q3

REPORT INFORMATION
  Report Type: 
  Country: None (occurrence: None)
  Receive Date: 20060829
  Receipt Date: 20060821
  Transmission Date: 20061208
  Serious: Yes (Other)
  Sender: FDA-Public Use
  Company Number: DE-AVENTIS-200612465DE

PATIENT
  Sex: Female

DRUGS (1)
  1. TAXOTERE [Suspect]
     Dosage: DOSE: NOT REPORTED

REACTIONS (2)
  - ASCITES [None]
  - HEPATIC CIRRHOSIS [None]
